FAERS Safety Report 5129512-2 (Version None)
Quarter: 2006Q4

REPORT INFORMATION
  Report Type: 
  Country: None (occurrence: None)
  Receive Date: 20061012
  Receipt Date: 20060929
  Transmission Date: 20070319
  Serious: Yes (Hospitalization, Other)
  Sender: FDA-Public Use
  Company Number: 2006098883

PATIENT
  Age: 43 Year
  Sex: Male
  Weight: 98.4306 kg

DRUGS (5)
  1. DILANTIN KAPSEAL [Suspect]
     Indication: CONVULSION
     Dosage: 300 MG (300 MG, 1 IN 1 D), ORAL
     Route: 048
     Dates: start: 20060309, end: 20060717
  2. DEPAKOTE [Suspect]
     Indication: CONVULSION
     Dosage: 1000 MG (500 MG, 2 IN 1 D), ORAL
     Route: 048
     Dates: start: 20060609
  3. NICOTINE [Concomitant]
  4. LORATADINE [Concomitant]
  5. DIVALPROEX                               (VALPROIC ACID) [Concomitant]

REACTIONS (16)
  - CEREBRAL HAEMANGIOMA [None]
  - CEREBROVASCULAR ACCIDENT [None]
  - CONVULSION [None]
  - DEMYELINATION [None]
  - DISORIENTATION [None]
  - DIZZINESS [None]
  - DRUG INEFFECTIVE [None]
  - DRUG INTERACTION [None]
  - LIPOMA [None]
  - LOSS OF CONSCIOUSNESS [None]
  - MICROANGIOPATHY [None]
  - NAUSEA [None]
  - PARTIAL SEIZURES [None]
  - TREMOR [None]
  - VASCULITIS [None]
  - VOMITING [None]
